FAERS Safety Report 13732626 (Version 1)
Quarter: 2017Q3

REPORT INFORMATION
  Report Type: Spontaneous
  Country: IN (occurrence: IN)
  Receive Date: 20170707
  Receipt Date: 20170707
  Transmission Date: 20171127
  Serious: Yes (Death)
  Sender: FDA-Public Use
  Company Number: IN-CORDEN PHARMA LATINA S.P.A.-IN-2017COR000153

PATIENT
  Age: 11 Year
  Sex: Male

DRUGS (3)
  1. LOMUSTINE. [Suspect]
     Active Substance: LOMUSTINE
     Indication: MEDULLOBLASTOMA
     Dosage: 800 MG/M2 TOTAL OVER 8 CYCLES
  2. VINCRISTINE [Concomitant]
     Active Substance: VINCRISTINE
     Indication: MEDULLOBLASTOMA
     Dosage: UNK, 8 CYCLES
  3. PREDNISOLONE. [Concomitant]
     Active Substance: PREDNISOLONE
     Indication: MEDULLOBLASTOMA
     Dosage: UNK, 8 CYCLES

REACTIONS (1)
  - Pulmonary toxicity [Fatal]
